FAERS Safety Report 6383660-8 (Version None)
Quarter: 2009Q3

REPORT INFORMATION
  Report Type: 
  Country: None (occurrence: None)
  Receive Date: 20090929
  Receipt Date: 20090929
  Transmission Date: 20100115
  Serious: Yes (Other)
  Sender: FDA-Public Use
  Company Number: None

PATIENT
  Age: 54 Year
  Sex: Male
  Weight: 65.5 kg

DRUGS (1)
  1. DOXYCYCLINE HYCLATE [Suspect]
     Dosage: 200MG/20ML ONCE ID
     Route: 023
     Dates: start: 20090923, end: 20090928

REACTIONS (3)
  - DRUG ADMINISTRATION ERROR [None]
  - INCORRECT ROUTE OF DRUG ADMINISTRATION [None]
  - SKIN NECROSIS [None]
